FAERS Safety Report 6278637-7 (Version None)
Quarter: 2009Q3

REPORT INFORMATION
  Report Type: 
  Country: None (occurrence: None)
  Receive Date: 20090722
  Receipt Date: 20090424
  Transmission Date: 20100115
  Serious: No
  Sender: FDA-Public Use
  Company Number: US-BAUSCH-2009BL001884

PATIENT
  Age: 83 Year
  Sex: Female

DRUGS (3)
  1. OPCON-A [Suspect]
     Indication: SEASONAL ALLERGY
     Route: 047
     Dates: start: 20090419, end: 20090424
  2. CENTRUM SILVER [Concomitant]
  3. TEARS NATURALE [Concomitant]

REACTIONS (3)
  - EYE IRRITATION [None]
  - OCULAR HYPERAEMIA [None]
  - VISION BLURRED [None]
